FAERS Safety Report 7820664-X (Version None)
Quarter: 2011Q4

REPORT INFORMATION
  Report Type: 
  Country: None (occurrence: None)
  Receive Date: 20111018
  Receipt Date: 20111011
  Transmission Date: 20120403
  Serious: Yes (Other)
  Sender: FDA-Public Use
  Company Number: US-JNJFOC-20111004920

PATIENT
  Sex: Male
  Weight: 90.72 kg

DRUGS (1)
  1. STELARA [Suspect]
     Indication: PSORIASIS
     Route: 058
     Dates: start: 20060101, end: 20101001

REACTIONS (2)
  - HEPATITIS B [None]
  - PSORIASIS [None]
